FAERS Safety Report 24605051 (Version 1)
Quarter: 2024Q4

REPORT INFORMATION
  Report Type: Spontaneous
  Country: US (occurrence: US)
  Receive Date: 20241111
  Receipt Date: 20241111
  Transmission Date: 20250114
  Serious: Yes (Other)
  Sender: GRIFOLS
  Company Number: US-IGSA-BIG0031440

PATIENT
  Age: 28 Year
  Sex: Female

DRUGS (1)
  1. GAMUNEX-C [Suspect]
     Active Substance: HUMAN IMMUNOGLOBULIN G
     Indication: Polyneuropathy
     Dosage: 175 GRAM, Q.4WK.
     Route: 042

REACTIONS (3)
  - Hyperglycaemia [Unknown]
  - Blood glucose increased [Unknown]
  - Heart rate abnormal [Unknown]

NARRATIVE: CASE EVENT DATE: 20241017
